FAERS Safety Report 19299642 (Version 1)
Quarter: 2021Q2

REPORT INFORMATION
  Report Type: Spontaneous
  Country: KR (occurrence: KR)
  Receive Date: 20210524
  Receipt Date: 20210524
  Transmission Date: 20210717
  Serious: Yes (Hospitalization, Other)
  Sender: FDA-Public Use
  Company Number: NVSC2021KR108333

PATIENT
  Sex: Female

DRUGS (3)
  1. IBRANCE [Concomitant]
     Active Substance: PALBOCICLIB
     Indication: PRODUCT USED FOR UNKNOWN INDICATION
     Dosage: UNK
     Route: 065
  2. XGEVA [Concomitant]
     Active Substance: DENOSUMAB
     Indication: PRODUCT USED FOR UNKNOWN INDICATION
     Dosage: UNK
     Route: 065
  3. FEMARA [Suspect]
     Active Substance: LETROZOLE
     Indication: METASTATIC NEOPLASM
     Dosage: UNK
     Route: 065

REACTIONS (6)
  - Herpes zoster [Unknown]
  - Neoplasm malignant [Unknown]
  - White blood cell count decreased [Unknown]
  - Cellulitis [Unknown]
  - Localised infection [Unknown]
  - Pyrexia [Unknown]

NARRATIVE: CASE EVENT DATE: 202102
